FAERS Safety Report 19665152 (Version 2)
Quarter: 2021Q3

REPORT INFORMATION
  Report Type: Spontaneous
  Country: US (occurrence: US)
  Receive Date: 20210805
  Receipt Date: 20210930
  Transmission Date: 20211014
  Serious: No
  Sender: FDA-Public Use
  Company Number: NVSC2021US176294

PATIENT
  Sex: Male

DRUGS (1)
  1. TIMOLOL MALEATE. [Suspect]
     Active Substance: TIMOLOL MALEATE
     Indication: PRODUCT USED FOR UNKNOWN INDICATION
     Dosage: 5 ML, SOLUTION OVER 10 YEARS
     Route: 065

REACTIONS (3)
  - Product dose omission issue [Unknown]
  - Underdose [Unknown]
  - Accidental exposure to product [Unknown]
